FAERS Safety Report 25100071 (Version 1)
Quarter: 2025Q1

REPORT INFORMATION
  Report Type: Spontaneous
  Country: US (occurrence: US)
  Receive Date: 20250320
  Receipt Date: 20250320
  Transmission Date: 20250409
  Serious: Yes (Hospitalization, Other)
  Sender: MEDICAP LABORATORIES
  Company Number: US-Medicap-000010

PATIENT
  Age: 24 Year
  Sex: Female

DRUGS (2)
  1. DRONABINOL [Suspect]
     Active Substance: DRONABINOL
     Indication: Product used for unknown indication
     Route: 065
  2. METFORMIN [Suspect]
     Active Substance: METFORMIN HYDROCHLORIDE
     Indication: Product used for unknown indication
     Route: 065

REACTIONS (7)
  - Intentional self-injury [Unknown]
  - Intentional overdose [Unknown]
  - Electrocardiogram QT prolonged [Unknown]
  - Hypothermia [Unknown]
  - Hypoglycaemia [Recovered/Resolved]
  - Blood lactic acid increased [Unknown]
  - Confusional state [Unknown]
